FAERS Safety Report 8487038-2 (Version None)
Quarter: 2012Q3

REPORT INFORMATION
  Report Type: 
  Country: None (occurrence: None)
  Receive Date: 20120704
  Receipt Date: 20120628
  Transmission Date: 20120928
  Serious: Yes (Hospitalization)
  Sender: FDA-Public Use
  Company Number: PHEH2012US012926

PATIENT

DRUGS (1)
  1. EXELON [Suspect]
     Route: 062

REACTIONS (2)
  - AGGRESSION [None]
  - MUSCLE TWITCHING [None]
